FAERS Safety Report 9498747 (Version 1)
Quarter: 2013Q3

REPORT INFORMATION
  Report Type: Report from Study
  Country: FR (occurrence: FR)
  Receive Date: 20130904
  Receipt Date: 20130904
  Transmission Date: 20140515
  Serious: Yes (Hospitalization, Other)
  Sender: FDA-Public Use
  Company Number: FR-PFIZER INC-2013249657

PATIENT
  Age: 6 Year
  Sex: Female

DRUGS (5)
  1. ADRIBLASTINE [Suspect]
     Indication: NEOPLASM MALIGNANT
     Dosage: 26 MG, TWICE LAST DOSE PRIOR TO EVENT: 04AUG2013
     Route: 042
     Dates: start: 20130713
  2. ACTINOMYCIN D [Suspect]
     Indication: NEOPLASM MALIGNANT
     Dosage: (1.3 MG,ONCE) LAST DOSE PRIOR TO EVENT:02AUG2013
     Route: 042
     Dates: start: 20130712
  3. HOLOXAN [Suspect]
     Indication: NEOPLASM MALIGNANT
     Dosage: (2600 MG,TWICE) LAST DOSE PRIOR TO EVEN:03AUG2013
     Route: 042
     Dates: start: 20130712
  4. VINCRISTIN [Suspect]
     Indication: NEOPLASM MALIGNANT
     Dosage: UNK
  5. BACTRIM [Concomitant]
     Dosage: 257 MG, UNK
     Dates: start: 20130715

REACTIONS (1)
  - Febrile bone marrow aplasia [Unknown]
